FAERS Safety Report 15956377 (Version 1)
Quarter: 2019Q1

REPORT INFORMATION
  Report Type: Spontaneous
  Country: US (occurrence: US)
  Receive Date: 20190213
  Receipt Date: 20190213
  Transmission Date: 20190417
  Serious: No
  Sender: FDA-Public Use
  Company Number: None

PATIENT
  Age: 21 Year
  Sex: Female
  Weight: 85.5 kg

DRUGS (1)
  1. DEXTROAMPHET SACCHARAT, AMPHET ASPARTATE, DEXTROAMPHET SULFATE AND AMPHET SULFAT [Suspect]
     Active Substance: AMPHETAMINE ASPARTATE\AMPHETAMINE SULFATE\DEXTROAMPHETAMINE SACCHARATE\DEXTROAMPHETAMINE SULFATE
     Indication: ATTENTION DEFICIT/HYPERACTIVITY DISORDER
     Dosage: ?          QUANTITY:120 TABLET(S);?
     Route: 048

REACTIONS (8)
  - Product substitution issue [None]
  - Vomiting [None]
  - Nausea [None]
  - Muscle spasms [None]
  - Tremor [None]
  - Migraine [None]
  - Drug intolerance [None]
  - Drug effect incomplete [None]

NARRATIVE: CASE EVENT DATE: 20190101
